FAERS Safety Report 9153122 (Version 1)
Quarter: 2013Q1

REPORT INFORMATION
  Report Type: Spontaneous
  Country: US (occurrence: None)
  Receive Date: 20130304
  Receipt Date: 20130304
  Transmission Date: 20140127
  Serious: Yes (Congenital Anomaly)
  Sender: FDA-Public Use
  Company Number: None

PATIENT
  Sex: Female
  Weight: 63.5 kg

DRUGS (1)
  1. ZOFRAN [Suspect]
     Indication: HYPEREMESIS GRAVIDARUM
     Dosage: 1 DAILY PO
     Route: 048
     Dates: start: 19991101, end: 19991201

REACTIONS (5)
  - Cleft uvula [None]
  - Cleft palate [None]
  - Tooth malformation [None]
  - Tooth disorder [None]
  - Maternal drugs affecting foetus [None]
